FAERS Safety Report 25383137 (Version 2)
Quarter: 2025Q2

REPORT INFORMATION
  Report Type: Spontaneous
  Country: US (occurrence: US)
  Receive Date: 20250602
  Receipt Date: 20250606
  Transmission Date: 20250717
  Serious: Yes (Life-Threatening, Hospitalization, Other)
  Sender: DR REDDYS
  Company Number: None

PATIENT
  Age: 17 Year
  Sex: Male

DRUGS (18)
  1. AMIODARONE [Suspect]
     Active Substance: AMIODARONE
     Indication: Atrial flutter
     Route: 048
  2. AMIODARONE [Suspect]
     Active Substance: AMIODARONE
     Indication: Ejection fraction decreased
     Dosage: MAINTENANCE DOSE WAS INCREASED
     Route: 048
  3. DOFETILIDE [Suspect]
     Active Substance: DOFETILIDE
     Indication: Atrial flutter
  4. DOFETILIDE [Suspect]
     Active Substance: DOFETILIDE
  5. DOFETILIDE [Suspect]
     Active Substance: DOFETILIDE
  6. DOFETILIDE [Suspect]
     Active Substance: DOFETILIDE
  7. DILTIAZEM [Suspect]
     Active Substance: DILTIAZEM
     Indication: Atrial flutter
  8. AMIODARONE [Suspect]
     Active Substance: AMIODARONE
     Indication: Atrial flutter
  9. AMIODARONE [Suspect]
     Active Substance: AMIODARONE
     Indication: Ejection fraction decreased
     Dosage: CONTINUOUS AMIODARONE INFUSION
  10. AMIODARONE [Suspect]
     Active Substance: AMIODARONE
     Dosage: CONTINUOUS AMIODARONE INFUSION
  11. AMIODARONE [Suspect]
     Active Substance: AMIODARONE
     Route: 048
  12. PROPRANOLOL [Concomitant]
     Active Substance: PROPRANOLOL HYDROCHLORIDE
     Indication: Cardiomyopathy
  13. VERAPAMIL [Concomitant]
     Active Substance: VERAPAMIL HYDROCHLORIDE
     Indication: Cardiomyopathy
  14. OMAVELOXOLONE [Concomitant]
     Active Substance: OMAVELOXOLONE
     Indication: Friedreich^s ataxia
  15. ADENOSINE [Concomitant]
     Active Substance: ADENOSINE
     Indication: Atrial flutter
  16. METOPROLOL TARTRATE [Concomitant]
     Active Substance: METOPROLOL TARTRATE
     Indication: Atrial flutter
  17. ESMOLOL [Concomitant]
     Active Substance: ESMOLOL HYDROCHLORIDE
     Indication: Atrial flutter
  18. DIGOXIN [Concomitant]
     Active Substance: DIGOXIN
     Indication: Atrial flutter

REACTIONS (10)
  - Hyperthyroidism [Recovering/Resolving]
  - Cardiac failure acute [Recovering/Resolving]
  - Cardiogenic shock [Recovering/Resolving]
  - Tachyarrhythmia [Recovering/Resolving]
  - Cardiac arrest [Recovered/Resolved]
  - Hyperthyroidism [Recovering/Resolving]
  - Condition aggravated [Recovering/Resolving]
  - Ventricular tachycardia [Unknown]
  - Drug ineffective [Unknown]
  - Product use in unapproved indication [Unknown]
